FAERS Safety Report 8320483-4 (Version None)
Quarter: 2012Q2

REPORT INFORMATION
  Report Type: 
  Country: None (occurrence: None)
  Receive Date: 20120427
  Receipt Date: 20120427
  Transmission Date: 20120825
  Serious: Yes (Hospitalization)
  Sender: FDA-Public Use
  Company Number: None

PATIENT
  Age: 29 Year
  Sex: Male
  Weight: 111.13 kg

DRUGS (3)
  1. LAMICTAL [Suspect]
     Indication: HYPERSENSITIVITY
     Dosage: 25 MG
     Route: 048
     Dates: start: 20120417, end: 20120426
  2. LAMICTAL [Suspect]
     Indication: STEVENS-JOHNSON SYNDROME
     Dosage: 25 MG
     Route: 048
     Dates: start: 20120417, end: 20120426
  3. LAMICTAL [Concomitant]

REACTIONS (3)
  - RASH [None]
  - ARTHRALGIA [None]
  - STEVENS-JOHNSON SYNDROME [None]
